FAERS Safety Report 23960499 (Version 1)
Quarter: 2024Q2

REPORT INFORMATION
  Report Type: Spontaneous
  Country: NL (occurrence: NL)
  Receive Date: 20240611
  Receipt Date: 20240611
  Transmission Date: 20240716
  Serious: Yes (Hospitalization, Other)
  Sender: FDA-Public Use
  Company Number: NL-SUN PHARMACEUTICAL INDUSTRIES LTD-2024R1-450188

PATIENT
  Age: 14 Year
  Sex: Male
  Weight: 60 kg

DRUGS (3)
  1. CLONAZEPAM [Interacting]
     Active Substance: CLONAZEPAM
     Indication: Epilepsy
     Dosage: 1.5 MILLIGRAM
     Route: 065
  2. GABAPENTIN [Interacting]
     Active Substance: GABAPENTIN
     Indication: Muscle spasticity
     Dosage: 600 MILLIGRAM
     Route: 065
  3. BACLOFEN [Suspect]
     Active Substance: BACLOFEN
     Indication: Muscle spasticity
     Dosage: 5 MILLIGRAM
     Route: 048

REACTIONS (3)
  - Coma scale [Unknown]
  - Oxygen therapy [Unknown]
  - Drug interaction [Unknown]
